FAERS Safety Report 15672694 (Version 7)
Quarter: 2019Q3

REPORT INFORMATION
  Report Type: Report from Study
  Country: US (occurrence: US)
  Receive Date: 20181129
  Receipt Date: 20190822
  Transmission Date: 20191004
  Serious: Yes (Other)
  Sender: FDA-Public Use
  Company Number: US-JNJFOC-20181138278

PATIENT
  Age: 72 Year
  Sex: Male

DRUGS (20)
  1. IMBRUVICA [Suspect]
     Active Substance: IBRUTINIB
     Dosage: 280 MG, QD
     Route: 048
     Dates: start: 20180522
  2. CETIRIZINE [Concomitant]
     Active Substance: CETIRIZINE HYDROCHLORIDE
  3. METOPROLOL. [Concomitant]
     Active Substance: METOPROLOL
  4. ATORVASTATIN [Concomitant]
     Active Substance: ATORVASTATIN
  5. MULTI [Concomitant]
  6. IMBRUVICA [Suspect]
     Active Substance: IBRUTINIB
     Indication: CHRONIC LYMPHOCYTIC LEUKAEMIA
     Dosage: 280 MG, QD
     Route: 048
     Dates: start: 20161122
  7. IMBRUVICA [Suspect]
     Active Substance: IBRUTINIB
     Dosage: 280 MG, QD
     Route: 048
     Dates: start: 20170720, end: 20180423
  8. VITAMIN B12 [Concomitant]
     Active Substance: CYANOCOBALAMIN
  9. CIALIS [Concomitant]
     Active Substance: TADALAFIL
  10. SILDENAFIL. [Concomitant]
     Active Substance: SILDENAFIL
  11. MEMANTINE. [Concomitant]
     Active Substance: MEMANTINE
  12. FOLIC ACID. [Concomitant]
     Active Substance: FOLIC ACID
  13. IMBRUVICA [Suspect]
     Active Substance: IBRUTINIB
     Dosage: 280 MG, QD
     Route: 048
     Dates: start: 20180401
  14. TAMSULOSIN [Concomitant]
     Active Substance: TAMSULOSIN
  15. LISINOPRIL. [Concomitant]
     Active Substance: LISINOPRIL
  16. IMBRUVICA [Suspect]
     Active Substance: IBRUTINIB
     Indication: CHRONIC LYMPHOCYTIC LEUKAEMIA
     Dosage: 280 MG, QD
     Route: 048
     Dates: start: 20180425, end: 20180521
  17. SULFASALAZINE. [Concomitant]
     Active Substance: SULFASALAZINE
  18. SYNTHROID [Concomitant]
     Active Substance: LEVOTHYROXINE SODIUM
  19. VITAMIN D [Concomitant]
     Active Substance: VITAMIN D NOS
  20. LOSARTAN. [Concomitant]
     Active Substance: LOSARTAN

REACTIONS (5)
  - Sleep apnoea syndrome [Recovering/Resolving]
  - Atrial flutter [Unknown]
  - Computerised tomogram coronary artery abnormal [Unknown]
  - Atrial fibrillation [Not Recovered/Not Resolved]
  - Fatigue [Recovered/Resolved]

NARRATIVE: CASE EVENT DATE: 20181110
